FAERS Safety Report 13892055 (Version 2)
Quarter: 2017Q4

REPORT INFORMATION
  Report Type: Report from Study
  Country: None (occurrence: US)
  Receive Date: 20170822
  Receipt Date: 20171104
  Transmission Date: 20180320
  Serious: Yes (Hospitalization)
  Sender: FDA-Public Use
  Company Number: US-ABBVIE-17K-163-2078319-00

PATIENT
  Sex: Male

DRUGS (2)
  1. PREDNISONE. [Concomitant]
     Active Substance: PREDNISONE
     Indication: COLITIS ULCERATIVE
  2. HUMIRA [Suspect]
     Active Substance: ADALIMUMAB
     Indication: COLITIS ULCERATIVE
     Route: 058
     Dates: start: 20170615

REACTIONS (3)
  - Cellulitis [Not Recovered/Not Resolved]
  - Upper respiratory tract infection [Unknown]
  - Bursitis [Not Recovered/Not Resolved]

NARRATIVE: CASE EVENT DATE: 2017
